FAERS Safety Report 14813857 (Version 1)
Quarter: 2018Q2

REPORT INFORMATION
  Report Type: Spontaneous
  Country: US (occurrence: US)
  Receive Date: 20180417
  Receipt Date: 20180417
  Transmission Date: 20180711
  Serious: No
  Sender: FDA-Public Use
  Company Number: None

PATIENT
  Age: 60 Year
  Sex: Male

DRUGS (1)
  1. HARVONI [Suspect]
     Active Substance: LEDIPASVIR\SOFOSBUVIR
     Indication: HEPATITIS C
     Dosage: :90/400 QD ORAL??3/14/2018-  6/10/2018
     Route: 048
     Dates: start: 20180314

REACTIONS (3)
  - Haemoglobin decreased [None]
  - Therapy change [None]
  - Drug dose omission [None]

NARRATIVE: CASE EVENT DATE: 20180331
